FAERS Safety Report 12912774 (Version 1)
Quarter: 2016Q4

REPORT INFORMATION
  Report Type: Other
  Country: CA (occurrence: CA)
  Receive Date: 20161104
  Receipt Date: 20161104
  Transmission Date: 20170207
  Serious: Yes (Life-Threatening)
  Sender: FDA-Public Use
  Company Number: CA-APOTEX-2016AP013676

PATIENT
  Sex: Female

DRUGS (2)
  1. APO-LAMOTRIGINE [Suspect]
     Active Substance: LAMOTRIGINE
     Indication: BIPOLAR DISORDER
     Dosage: 400.0 MG, 1 EVERY 1 DAY
     Route: 064
  2. SEROQUEL [Concomitant]
     Active Substance: QUETIAPINE FUMARATE
     Indication: PRODUCT USED FOR UNKNOWN INDICATION
     Dosage: UNK
     Route: 065

REACTIONS (2)
  - Foetal exposure during pregnancy [Recovered/Resolved]
  - Pulmonary valve stenosis [Recovered/Resolved]
